FAERS Safety Report 7001644-3 (Version None)
Quarter: 2010Q3

REPORT INFORMATION
  Report Type: 
  Country: None (occurrence: None)
  Receive Date: 20100920
  Receipt Date: 20100726
  Transmission Date: 20110219
  Serious: Yes (Other)
  Sender: FDA-Public Use
  Company Number: PHHY2010KR50059

PATIENT
  Sex: Male

DRUGS (10)
  1. DIOVAN [Suspect]
     Indication: HYPERTENSION
     Dosage: 80 MG DAILY
     Route: 048
     Dates: start: 20080917
  2. DIOVAN [Suspect]
     Dosage: 80 MG DAILY
     Route: 048
     Dates: start: 20081104
  3. DIOVAN [Suspect]
     Dosage: 160 MG DAILY
     Route: 048
     Dates: start: 20100707
  4. DIOVAN [Suspect]
     Dosage: 160 MG DAILY
     Route: 048
     Dates: start: 20100726
  5. EXFORGE [Suspect]
     Dosage: 5/160 MG DAILY
     Dates: start: 20081024
  6. NORVASC [Concomitant]
     Indication: HYPERTENSION
     Dosage: 1.5 TABLET (5 MG) DAILY
     Route: 048
     Dates: start: 20080917
  7. NORVASC [Concomitant]
     Dosage: 1.5 TABLET (5 MG) DAILY
     Route: 048
     Dates: start: 20081104
  8. NORVASC [Concomitant]
     Dosage: 1 TABLET (10 MG) DAILY
     Route: 048
     Dates: start: 20100707
  9. NORVASC [Concomitant]
     Dosage: 2 TABLET (5 MG) DAILY
     Route: 048
     Dates: start: 20100726
  10. NORVASC [Concomitant]
     Dosage: 1.5 TABLET (5 MG) DAILY

REACTIONS (4)
  - BLOOD PRESSURE INADEQUATELY CONTROLLED [None]
  - CHEST DISCOMFORT [None]
  - HEADACHE [None]
  - INSOMNIA [None]
